FAERS Safety Report 4283684-0 (Version None)
Quarter: 2004Q1

REPORT INFORMATION
  Report Type: 
  Country: None (occurrence: None)
  Receive Date: 20040202
  Receipt Date: 20031126
  Transmission Date: 20041129
  Serious: Yes (Other)
  Sender: FDA-Public Use
  Company Number: PHFR2003GB04579

PATIENT
  Sex: Female

DRUGS (3)
  1. TRILEPTAL [Suspect]
     Indication: EPILEPSY
     Dosage: 150 MG, BID
     Route: 048
  2. TOPIRMATE [Concomitant]
     Route: 065
  3. CLOBAZAM [Concomitant]
     Dosage: UNK, PRN
     Route: 065

REACTIONS (1)
  - DIPLEGIA [None]
